FAERS Safety Report 20983665 (Version 1)
Quarter: 2022Q2

REPORT INFORMATION
  Report Type: Spontaneous
  Country: US (occurrence: US)
  Receive Date: 20220620
  Receipt Date: 20220620
  Transmission Date: 20220721
  Serious: No
  Sender: FDA-Public Use
  Company Number: US-JNJFOC-20220629298

PATIENT

DRUGS (1)
  1. PEPCID [Suspect]
     Active Substance: FAMOTIDINE
     Indication: Product used for unknown indication
     Dosage: 4 AT A TIME
     Route: 065

REACTIONS (2)
  - Overdose [Unknown]
  - Drug ineffective [Unknown]
